FAERS Safety Report 8420924-8 (Version None)
Quarter: 2012Q2

REPORT INFORMATION
  Report Type: 
  Country: None (occurrence: None)
  Receive Date: 20120608
  Receipt Date: 20120604
  Transmission Date: 20120825
  Serious: Yes (Death)
  Sender: FDA-Public Use
  Company Number: US-PFIZER INC-2012135852

PATIENT
  Sex: Male

DRUGS (1)
  1. INLYTA [Suspect]
     Dosage: 10 MG EACH DAY (UNKNOWN IF DOSE WAS 5MG BID OR 10MG DAILY)
     Dates: start: 20120301

REACTIONS (1)
  - DEATH [None]
